FAERS Safety Report 9344434 (Version 2)
Quarter: 2013Q3

REPORT INFORMATION
  Report Type: Spontaneous
  Country: US (occurrence: US)
  Receive Date: 20130612
  Receipt Date: 20130726
  Transmission Date: 20140515
  Serious: Yes (Death, Hospitalization)
  Sender: FDA-Public Use
  Company Number: US-CELGENEUS-163-POMAL-13061462

PATIENT
  Age: 88 Year
  Sex: Male

DRUGS (10)
  1. POMALYST [Suspect]
     Indication: PLASMA CELL MYELOMA
     Dosage: 4 MILLIGRAM
     Route: 048
     Dates: start: 20130201, end: 20130222
  2. TAMSULOSIN [Concomitant]
     Indication: PRODUCT USED FOR UNKNOWN INDICATION
     Dosage: .4 MILLIGRAM
     Route: 065
     Dates: end: 20130327
  3. VITAMIN C [Concomitant]
     Indication: PRODUCT USED FOR UNKNOWN INDICATION
     Dosage: 500 MILLIGRAM
     Route: 065
     Dates: end: 20130327
  4. FLOMAX [Concomitant]
     Indication: URINARY RETENTION
     Dosage: .1 MILLIGRAM
     Route: 065
     Dates: end: 20130327
  5. FLONASE [Concomitant]
     Indication: PRODUCT USED FOR UNKNOWN INDICATION
     Dosage: 2 SPRAYS
     Route: 045
     Dates: end: 20130327
  6. ARICEPT [Concomitant]
     Indication: DEMENTIA
     Dosage: 10 MILLIGRAM
     Route: 065
     Dates: end: 20130327
  7. ATENOLOL [Concomitant]
     Indication: HYPERTENSION
     Dosage: 25 MILLIGRAM
     Route: 065
     Dates: end: 20130327
  8. LIPITOR [Concomitant]
     Indication: PRODUCT USED FOR UNKNOWN INDICATION
     Dosage: 20 MILLIGRAM
     Route: 065
     Dates: end: 20130327
  9. CELEXA [Concomitant]
     Indication: DEMENTIA
     Dosage: 20 MILLIGRAM
     Route: 065
     Dates: end: 20130327
  10. NAMENDA [Concomitant]
     Indication: DEMENTIA
     Dosage: 20 MILLIGRAM
     Route: 065
     Dates: end: 20130327

REACTIONS (2)
  - Plasma cell myeloma [Fatal]
  - Cerebrovascular accident [Recovering/Resolving]
